FAERS Safety Report 8384665 (Version 3)
Quarter: 2014Q1

REPORT INFORMATION
  Report Type: Spontaneous
  Country: US (occurrence: US)
  Receive Date: 20120202
  Receipt Date: 20140203
  Transmission Date: 20141002
  Serious: Yes (Other)
  Sender: FDA-Public Use
  Company Number: US-JNJFOC-20120112019

PATIENT
  Age: 55 Year
  Sex: Female
  Weight: 56.02 kg

DRUGS (8)
  1. UNSPECIFIED FENTANYL TRANSDERMAL SYSTEM [Suspect]
     Indication: PAIN
     Route: 062
     Dates: start: 2007, end: 201103
  2. DURAGESIC [Suspect]
     Indication: PAIN
     Route: 062
     Dates: start: 201103
  3. SOMA [Concomitant]
     Indication: MUSCLE SPASMS
     Route: 048
     Dates: start: 2001
  4. LISINOPRIL HCTZ [Concomitant]
     Indication: BLOOD PRESSURE
     Dosage: 20 MG/12.5 MG
     Route: 048
     Dates: start: 2000
  5. SIMVASTATIN [Concomitant]
     Indication: BLOOD CHOLESTEROL
     Route: 048
     Dates: start: 2006
  6. PHENOBARBITAL [Concomitant]
     Indication: HOT FLUSH
     Dosage: FOUR TIMES A DAY AS NEEDED
     Route: 048
     Dates: start: 2006
  7. LORAZEPAM [Concomitant]
     Indication: ANXIETY
     Route: 048
     Dates: start: 2010
  8. OMEPRAZOLE [Concomitant]
     Indication: GASTRIC DISORDER
     Route: 048
     Dates: start: 2000

REACTIONS (18)
  - Cerebrovascular accident [Not Recovered/Not Resolved]
  - Visual impairment [Not Recovered/Not Resolved]
  - Hypoaesthesia [Recovered/Resolved]
  - Hypoaesthesia [Recovered/Resolved]
  - Thrombosis [Not Recovered/Not Resolved]
  - Disturbance in social behaviour [Recovered/Resolved]
  - Suicidal ideation [Recovered/Resolved]
  - Abdominal distension [Recovered/Resolved]
  - Swelling face [Recovered/Resolved]
  - Urinary tract infection [Not Recovered/Not Resolved]
  - Inappropriate schedule of drug administration [Recovered/Resolved]
  - Pain [Recovered/Resolved]
  - Weight increased [Recovered/Resolved]
  - Abnormal loss of weight [Not Recovered/Not Resolved]
  - Joint swelling [Recovered/Resolved]
  - Product quality issue [Unknown]
  - Product packaging issue [Unknown]
  - Product colour issue [Unknown]
